FAERS Safety Report 12513972 (Version 1)
Quarter: 2016Q2

REPORT INFORMATION
  Report Type: Spontaneous
  Country: US (occurrence: None)
  Receive Date: 20160629
  Receipt Date: 20160629
  Transmission Date: 20160815
  Serious: Yes (Life-Threatening)
  Sender: FDA-Public Use
  Company Number: None

PATIENT
  Age: 63 Year
  Sex: Male

DRUGS (23)
  1. VALACYCLOVIR [Suspect]
     Active Substance: VALACYCLOVIR HYDROCHLORIDE
     Indication: ENCEPHALITIS
     Route: 048
     Dates: start: 20160307, end: 20160311
  2. MV [Concomitant]
  3. SIMVASTATIN. [Concomitant]
     Active Substance: SIMVASTATIN
  4. VITAMIN D [Concomitant]
     Active Substance: CHOLECALCIFEROL
  5. TRIFLUOPERAZINE [Concomitant]
     Active Substance: TRIFLUOPERAZINE\TRIFLUOPERAZINE HYDROCHLORIDE
  6. IPRATROPIUM HFA [Concomitant]
  7. CARISOPRODOL. [Concomitant]
     Active Substance: CARISOPRODOL
  8. LOXAPINE. [Concomitant]
     Active Substance: LOXAPINE
  9. ANALGESIC BALM [Concomitant]
     Active Substance: MENTHOL\METHYL SALICYLATE
  10. SULINDAC. [Concomitant]
     Active Substance: SULINDAC
  11. GEMFIBROZIL. [Concomitant]
     Active Substance: GEMFIBROZIL
  12. ASA [Concomitant]
     Active Substance: ASPIRIN
  13. METOPROLOL XL [Concomitant]
     Active Substance: METOPROLOL SUCCINATE
  14. CLINDAMYCIN [Concomitant]
     Active Substance: CLINDAMYCIN\CLINDAMYCIN PHOSPHATE
  15. VALACYCLOVIR [Suspect]
     Active Substance: VALACYCLOVIR HYDROCHLORIDE
     Indication: HERPES ZOSTER
     Route: 048
     Dates: start: 20160307, end: 20160311
  16. GABAPENTIN. [Concomitant]
     Active Substance: GABAPENTIN
  17. ADVAIR HFA [Concomitant]
     Active Substance: FLUTICASONE PROPIONATE\SALMETEROL XINAFOATE
  18. HCTZ [Concomitant]
     Active Substance: HYDROCHLOROTHIAZIDE
  19. DOCUSATE [Concomitant]
     Active Substance: DOCUSATE
  20. DEPAKOTE ER [Concomitant]
     Active Substance: DIVALPROEX SODIUM
  21. TRIHEXYPHENIDYL [Concomitant]
     Active Substance: TRIHEXYPHENIDYL
  22. METFORMIN [Concomitant]
     Active Substance: METFORMIN HYDROCHLORIDE
  23. PEPTO-BISMOL [Concomitant]
     Active Substance: BISMUTH SUBSALICYLATE

REACTIONS (2)
  - Aspartate aminotransferase increased [None]
  - Alanine aminotransferase increased [None]

NARRATIVE: CASE EVENT DATE: 20160311
